FAERS Safety Report 19663590 (Version 4)
Quarter: 2021Q3

REPORT INFORMATION
  Report Type: Report from Study
  Country: US (occurrence: US)
  Receive Date: 20210805
  Receipt Date: 20210830
  Transmission Date: 20211014
  Serious: Yes (Hospitalization, Other)
  Sender: FDA-Public Use
  Company Number: US-SA-2020SA324309

PATIENT
  Age: 67 Year
  Sex: Male

DRUGS (2)
  1. DUPILUMAB [Suspect]
     Active Substance: DUPILUMAB
     Indication: DERMATITIS ATOPIC
     Dosage: 600 MG, 1X
     Route: 058
     Dates: start: 20200925, end: 20200925
  2. DUPILUMAB [Suspect]
     Active Substance: DUPILUMAB
     Dosage: 300 MG, QOW
     Route: 058
     Dates: start: 2020, end: 20210825

REACTIONS (17)
  - Acute leukaemia [Unknown]
  - Pruritus [Unknown]
  - Skin weeping [Not Recovered/Not Resolved]
  - Platelet count decreased [Unknown]
  - Injection site pain [Unknown]
  - Pain [Unknown]
  - Skin exfoliation [Unknown]
  - Dizziness [Unknown]
  - Red blood cell count decreased [Recovering/Resolving]
  - Wrong technique in device usage process [Unknown]
  - Injection site haemorrhage [Unknown]
  - Needle issue [Unknown]
  - Pain in extremity [Unknown]
  - Blister [Unknown]
  - White blood cell count decreased [Unknown]
  - Ill-defined disorder [Not Recovered/Not Resolved]
  - Tendon pain [Unknown]

NARRATIVE: CASE EVENT DATE: 2020
